FAERS Safety Report 7317372-0 (Version None)
Quarter: 2011Q1

REPORT INFORMATION
  Report Type: 
  Country: None (occurrence: None)
  Receive Date: 20110226
  Receipt Date: 20101029
  Transmission Date: 20110831
  Serious: No
  Sender: FDA-Public Use
  Company Number: US-ALLERGAN-1013973US

PATIENT
  Age: 58 Year
  Sex: Female
  Weight: 81.633 kg

DRUGS (7)
  1. CELEBREX [Concomitant]
     Dosage: 100 MG, QD
  2. PROZAC [Concomitant]
     Dosage: 5 MG, QD
  3. BOTOXA? [Suspect]
     Indication: MUSCLE SPASTICITY
     Dosage: UNK
     Dates: start: 20090101, end: 20090101
  4. TRAZODONE HCL [Concomitant]
     Dosage: 200 MG, QHS
  5. HYDROCODONE BITARTRATE [Concomitant]
     Dosage: 10 MG, TID
  6. PLAVIX [Concomitant]
     Dosage: 75 MG, QD
  7. ZONISAMIDE [Concomitant]
     Dosage: 40 MG, QD

REACTIONS (4)
  - INJECTION SITE PAIN [None]
  - DRUG INEFFECTIVE [None]
  - PAIN IN EXTREMITY [None]
  - MUSCLE TIGHTNESS [None]
